FAERS Safety Report 6358527-1 (Version None)
Quarter: 2009Q3

REPORT INFORMATION
  Report Type: 
  Country: None (occurrence: None)
  Receive Date: 20090916
  Receipt Date: 20090901
  Transmission Date: 20100115
  Serious: Yes (Hospitalization)
  Sender: FDA-Public Use
  Company Number: GB-GILEAD-2008-0018291

PATIENT
  Age: 33 Year
  Sex: Female

DRUGS (6)
  1. EMTRIVA [Suspect]
     Indication: HIV INFECTION
  2. VIREAD [Suspect]
     Indication: HIV INFECTION
  3. LAMIVUDINE [Suspect]
     Indication: HIV INFECTION
  4. NEVIRAPINE [Suspect]
     Indication: HIV INFECTION
  5. RITONAVIR [Suspect]
  6. SAQUINAVIR [Suspect]

REACTIONS (9)
  - ACNE [None]
  - BLOOD HIV RNA INCREASED [None]
  - DERMATITIS ACNEIFORM [None]
  - EXFOLIATIVE RASH [None]
  - IMMUNE RECONSTITUTION SYNDROME [None]
  - RASH [None]
  - RASH ERYTHEMATOUS [None]
  - REBOUND EFFECT [None]
  - TOXIC EPIDERMAL NECROLYSIS [None]
